FAERS Safety Report 8319699-2 (Version None)
Quarter: 2012Q2

REPORT INFORMATION
  Report Type: 
  Country: None (occurrence: None)
  Receive Date: 20120427
  Receipt Date: 20120420
  Transmission Date: 20120825
  Serious: Yes (Other)
  Sender: FDA-Public Use
  Company Number: US-ASTRAZENECA-2012SE26046

PATIENT
  Age: 72 Year
  Sex: Female
  Weight: 68 kg

DRUGS (1)
  1. SYMBICORT [Suspect]
     Indication: ASTHMA
     Dosage: 80/4.5MCG 2 PUFFS BID
     Route: 055

REACTIONS (7)
  - URINARY TRACT INFECTION [None]
  - CATARACT [None]
  - CHEST PAIN [None]
  - PAIN IN EXTREMITY [None]
  - CHOLELITHIASIS [None]
  - GLAUCOMA [None]
  - VISUAL IMPAIRMENT [None]
